FAERS Safety Report 19035508 (Version 1)
Quarter: 2021Q1

REPORT INFORMATION
  Report Type: Report from Study
  Country: US (occurrence: US)
  Receive Date: 20210320
  Receipt Date: 20210320
  Transmission Date: 20210420
  Serious: Yes (Hospitalization)
  Sender: FDA-Public Use
  Company Number: US-SHIRE-US201822608

PATIENT
  Age: 58 Year
  Sex: Female
  Weight: 61 kg

DRUGS (8)
  1. TEDUGLUTIDE [Suspect]
     Active Substance: TEDUGLUTIDE
     Indication: SHORT-BOWEL SYNDROME
     Dosage: 0.08 MILLIGRAM/KILOGRAM, 1X/DAY:QD (7 DOSES PER WEEK)
     Route: 065
     Dates: start: 20171013
  2. TEDUGLUTIDE [Suspect]
     Active Substance: TEDUGLUTIDE
     Indication: SHORT-BOWEL SYNDROME
     Dosage: 0.08 MILLIGRAM/KILOGRAM, 1X/DAY:QD (7 DOSES PER WEEK)
     Route: 065
     Dates: start: 20171013
  3. QUETIAPINE. [Concomitant]
     Active Substance: QUETIAPINE
     Indication: DEPRESSION
  4. CEPHALEXIN. [Concomitant]
     Active Substance: CEPHALEXIN
     Indication: SHORT-BOWEL SYNDROME
  5. OPIUM. [Concomitant]
     Active Substance: OPIUM
     Indication: SHORT-BOWEL SYNDROME
  6. TEDUGLUTIDE [Suspect]
     Active Substance: TEDUGLUTIDE
     Indication: SHORT-BOWEL SYNDROME
     Dosage: 0.08 MILLIGRAM/KILOGRAM, 1X/DAY:QD (7 DOSES PER WEEK)
     Route: 065
     Dates: start: 20171013
  7. TEDUGLUTIDE [Suspect]
     Active Substance: TEDUGLUTIDE
     Indication: SHORT-BOWEL SYNDROME
     Dosage: 0.08 MILLIGRAM/KILOGRAM, 1X/DAY:QD (7 DOSES PER WEEK)
     Route: 065
     Dates: start: 20171013
  8. LOPERAMIDE [Concomitant]
     Active Substance: LOPERAMIDE
     Indication: SHORT-BOWEL SYNDROME

REACTIONS (3)
  - Device related sepsis [Recovered/Resolved]
  - Abdominal pain [Recovered/Resolved]
  - Vascular device infection [Recovered/Resolved]

NARRATIVE: CASE EVENT DATE: 20171206
